FAERS Safety Report 13450336 (Version 1)
Quarter: 2017Q2

REPORT INFORMATION
  Report Type: Spontaneous
  Country: US (occurrence: US)
  Receive Date: 20170417
  Receipt Date: 20170417
  Transmission Date: 20170830
  Serious: No
  Sender: FDA-Public Use
  Company Number: None

PATIENT

DRUGS (2)
  1. BUDESONIDE 0.5MG/2ML [Suspect]
     Active Substance: BUDESONIDE
     Dosage: DOSAGE FORM - SUSPENSION
     Route: 055
  2. VIMPAT [Suspect]
     Active Substance: LACOSAMIDE
     Dosage: DOSAGE FORM - SOLUTION?SIZE - 465 ML
     Route: 048

REACTIONS (1)
  - Product label confusion [None]
